FAERS Safety Report 4398142-2 (Version None)
Quarter: 2004Q3

REPORT INFORMATION
  Report Type: 
  Country: None (occurrence: None)
  Receive Date: 20040713
  Receipt Date: 20040630
  Transmission Date: 20050211
  Serious: Yes (Hospitalization)
  Sender: FDA-Public Use
  Company Number: 2004044119

PATIENT
  Age: 65 Year
  Sex: Female
  Weight: 68.0396 kg

DRUGS (6)
  1. NARDIL [Suspect]
     Indication: ANXIETY
     Dosage: 75 MG (15 MG, 5 IN 1 D), ORAL
     Route: 048
  2. ALL OTHER NON-THERAPEUTIC PRODUCTS (ALL OTHER NON-THERAPEUTIC PRODUCTS [Suspect]
     Indication: ILL-DEFINED DISORDER
     Dosage: ORAL
     Route: 048
     Dates: start: 20040620, end: 20040620
  3. LOSARTAN POTASSIUM [Concomitant]
  4. ALL OTHER THERAPEUTIC PRODUCTS (ALL OTHER THERAPEUTIC PRODUCTS) [Concomitant]
  5. AZATHIOPRINE [Concomitant]
  6. RABEPRAZOLE SODIUM (RABEPRAZOLE SODIUM) [Concomitant]

REACTIONS (4)
  - BLOOD PRESSURE DECREASED [None]
  - DRUG INEFFECTIVE [None]
  - FALL [None]
  - FOOD INTERACTION [None]
